FAERS Safety Report 9685664 (Version 1)
Quarter: 2013Q4

REPORT INFORMATION
  Report Type: Spontaneous
  Country: US (occurrence: US)
  Receive Date: 20131113
  Receipt Date: 20131113
  Transmission Date: 20140711
  Serious: No
  Sender: FDA-Public Use
  Company Number: US-PFIZER INC-2013320929

PATIENT
  Age: 70 Year
  Sex: Female
  Weight: 102 kg

DRUGS (6)
  1. CELEBREX [Suspect]
     Indication: ARTHRITIS
     Dosage: 200 MG, DAILY
     Dates: start: 2004
  2. CELEBREX [Suspect]
     Dosage: 200 MG, DAILY
  3. FOSINOPRIL [Concomitant]
     Indication: HYPERTENSION
     Dosage: 20 MG, 2X/DAY
  4. METOPROLOL [Concomitant]
     Indication: HYPERTENSION
     Dosage: 25 MG, 2X/DAY
  5. PRAVASTATIN [Concomitant]
     Indication: BLOOD CHOLESTEROL INCREASED
     Dosage: 40 MG, DAILY
  6. MONTELUKAST [Concomitant]
     Indication: ASTHMA
     Dosage: 10 MG, DAILY

REACTIONS (1)
  - Vertigo [Unknown]
